FAERS Safety Report 16063111 (Version 2)
Quarter: 2019Q2

REPORT INFORMATION
  Report Type: Spontaneous
  Country: JP (occurrence: JP)
  Receive Date: 20190312
  Receipt Date: 20190412
  Transmission Date: 20190711
  Serious: Yes (Disabling, Other)
  Sender: FDA-Public Use
  Company Number: JP-ELI_LILLY_AND_COMPANY-JP201903001457

PATIENT
  Sex: Male
  Weight: 65 kg

DRUGS (14)
  1. CYRAMZA [Suspect]
     Active Substance: RAMUCIRUMAB
     Indication: LUNG ADENOCARCINOMA RECURRENT
     Dosage: 630 MG, CYCLICAL
     Route: 041
     Dates: start: 20171120
  2. CARVEDILOL. [Concomitant]
     Active Substance: CARVEDILOL
     Indication: HYPERTENSION
     Dosage: 10 MG, DAILY
     Dates: start: 20171122
  3. CYRAMZA [Suspect]
     Active Substance: RAMUCIRUMAB
     Dosage: 490 MG, CYCLICAL
     Route: 041
     Dates: end: 20180204
  4. TAKECAB [Concomitant]
     Active Substance: VONOPRAZAN FUMURATE
     Indication: GASTRIC ULCER
     Dosage: 10 MG, DAILY
     Route: 048
  5. LOTRIGA [Concomitant]
     Active Substance: OMEGA-3-ACID ETHYL ESTERS
     Indication: HYPERLIPIDAEMIA
     Dosage: 2 G, DAILY
     Route: 048
  6. CYRAMZA [Suspect]
     Active Substance: RAMUCIRUMAB
     Dosage: 500 MG, CYCLICAL
     Route: 041
  7. ELIQUIS [Suspect]
     Active Substance: APIXABAN
     Indication: ATRIAL FIBRILLATION
     Dosage: 5 MG, DAILY
     Route: 048
     Dates: start: 20171122
  8. FUROSEMIDE. [Concomitant]
     Active Substance: FUROSEMIDE
     Indication: OEDEMA PERIPHERAL
     Dosage: 20 MG, OTHER
     Route: 048
  9. DOCETAXEL. [Concomitant]
     Active Substance: DOCETAXEL
     Indication: LUNG ADENOCARCINOMA RECURRENT
     Dosage: 100 MG, CYCLICAL
     Route: 041
     Dates: start: 20171120
  10. DOCETAXEL. [Concomitant]
     Active Substance: DOCETAXEL
     Dosage: 80 MG, CYCLICAL
     Route: 041
     Dates: end: 20180204
  11. NOVORAPID [Concomitant]
     Active Substance: INSULIN ASPART
     Indication: DIABETES MELLITUS
     Dosage: UNK
     Route: 058
  12. LANTUS [Concomitant]
     Active Substance: INSULIN GLARGINE
     Indication: DIABETES MELLITUS
     Dosage: 11 UNK
     Route: 058
  13. G LASTA [Concomitant]
     Active Substance: PEGFILGRASTIM
     Indication: NEUTROPENIA
     Dosage: 3.6 MG, CYCLICAL
     Route: 058
     Dates: start: 20171122, end: 20190206
  14. HALFDIGOXIN KY [Concomitant]
     Indication: ATRIAL FIBRILLATION
     Dosage: 0.125 MG, DAILY
     Route: 048
     Dates: start: 20171122

REACTIONS (2)
  - Vitreous haemorrhage [Unknown]
  - Rhegmatogenous retinal detachment [Unknown]

NARRATIVE: CASE EVENT DATE: 20190302
